FAERS Safety Report 14836265 (Version 7)
Quarter: 2019Q2

REPORT INFORMATION
  Report Type: Spontaneous
  Country: US (occurrence: US)
  Receive Date: 20180502
  Receipt Date: 20190503
  Transmission Date: 20190711
  Serious: Yes (Other)
  Sender: FDA-Public Use
  Company Number: US-PFIZER INC-2017493207

PATIENT
  Age: 3 Year
  Sex: Male
  Weight: 24.69 kg

DRUGS (7)
  1. GENOTROPIN [Suspect]
     Active Substance: SOMATROPIN
     Indication: HYPOTONIA
     Dosage: 0.7 MG, ONCE DAILY (NIGHTLY)
     Dates: start: 20171031
  2. GENOTROPIN [Suspect]
     Active Substance: SOMATROPIN
     Dosage: 0.7 MG, DAILY (7 DAYS/WEEK)
     Dates: start: 201703
  3. GENOTROPIN [Suspect]
     Active Substance: SOMATROPIN
     Indication: GROWTH HORMONE DEFICIENCY
     Dosage: UNK, DAILY (0.6 ON THE 12MG CARTRIDGE DAILY)
     Dates: start: 20170307
  4. GENOTROPIN [Suspect]
     Active Substance: SOMATROPIN
     Indication: PRADER-WILLI SYNDROME
     Dosage: 0.6 MG, DAILY
  5. GENOTROPIN [Suspect]
     Active Substance: SOMATROPIN
     Dosage: UNK
     Dates: start: 20170701
  6. GENOTROPIN [Suspect]
     Active Substance: SOMATROPIN
     Dosage: 0.7 MG, DAILY
     Dates: start: 20170701
  7. GENOTROPIN [Suspect]
     Active Substance: SOMATROPIN
     Dosage: 0.7 MG, 1X/DAY (ONCE A NIGHT)
     Dates: start: 2017

REACTIONS (8)
  - Metabolic disorder [Not Recovered/Not Resolved]
  - Condition aggravated [Not Recovered/Not Resolved]
  - Product dispensing error [Unknown]
  - Lower limb fracture [Unknown]
  - Product dose omission [Unknown]
  - Weight increased [Not Recovered/Not Resolved]
  - Fall [Unknown]
  - Device issue [Unknown]

NARRATIVE: CASE EVENT DATE: 20180415
